FAERS Safety Report 23792424 (Version 1)
Quarter: 2024Q2

REPORT INFORMATION
  Report Type: Spontaneous
  Country: CA (occurrence: CA)
  Receive Date: 20240429
  Receipt Date: 20240429
  Transmission Date: 20240716
  Serious: Yes (Other)
  Sender: FDA-Public Use
  Company Number: CA-009507513-2404CAN011392

PATIENT
  Age: 58 Year
  Sex: Female

DRUGS (2)
  1. EMEND [Interacting]
     Active Substance: APREPITANT
     Indication: Nausea
     Dosage: UNK
     Route: 065
  2. APIXABAN [Interacting]
     Active Substance: APIXABAN
     Indication: Tumour thrombosis
     Dosage: 5 MILLIGRAM, 1 EVERY 5 DAYS
     Route: 048

REACTIONS (2)
  - Drug interaction [Unknown]
  - Gastrointestinal haemorrhage [Unknown]
